FAERS Safety Report 21563204 (Version 1)
Quarter: 2022Q4

REPORT INFORMATION
  Report Type: Spontaneous
  Country: US (occurrence: US)
  Receive Date: 20221107
  Receipt Date: 20221107
  Transmission Date: 20230113
  Serious: Yes (Hospitalization)
  Sender: FDA-Public Use
  Company Number: US-SA-SAC20221103001974

PATIENT
  Age: 58 Year
  Sex: Female
  Weight: 123.36 kg

DRUGS (1)
  1. DUPIXENT [Suspect]
     Active Substance: DUPILUMAB
     Dosage: 300 MG QOW
     Route: 058

REACTIONS (2)
  - Surgery [Unknown]
  - Incision site complication [Unknown]

NARRATIVE: CASE EVENT DATE: 20221025
